FAERS Safety Report 12931263 (Version 2)
Quarter: 2019Q1

REPORT INFORMATION
  Report Type: Spontaneous
  Country: US (occurrence: US)
  Receive Date: 20161110
  Receipt Date: 20190328
  Transmission Date: 20190417
  Serious: No
  Sender: FDA-Public Use
  Company Number: US-JAZZ-2016-US-018091

PATIENT
  Sex: Female

DRUGS (24)
  1. LAMOTRIGINE. [Concomitant]
     Active Substance: LAMOTRIGINE
  2. NORCO [Concomitant]
     Active Substance: ACETAMINOPHEN\HYDROCODONE BITARTRATE
  3. NASONEX [Concomitant]
     Active Substance: MOMETASONE FUROATE
  4. PATANOL [Concomitant]
     Active Substance: OLOPATADINE HYDROCHLORIDE
  5. XYREM [Suspect]
     Active Substance: SODIUM OXYBATE
     Indication: CATAPLEXY
     Dosage: DOSE ADJUSTMENTS
     Route: 048
     Dates: start: 201603, end: 2016
  6. DOCUSATE SODIUM. [Concomitant]
     Active Substance: DOCUSATE SODIUM
  7. BACTRIM [Concomitant]
     Active Substance: SULFAMETHOXAZOLE\TRIMETHOPRIM
  8. ALPRAZOLAM. [Concomitant]
     Active Substance: ALPRAZOLAM
  9. PRIMIDONE. [Concomitant]
     Active Substance: PRIMIDONE
  10. PROPOFOL. [Concomitant]
     Active Substance: PROPOFOL
  11. RISPERIDONE. [Concomitant]
     Active Substance: RISPERIDONE
  12. ONDANSETRON [Concomitant]
     Active Substance: ONDANSETRON
  13. XYREM [Suspect]
     Active Substance: SODIUM OXYBATE
     Indication: NARCOLEPSY
     Dosage: 2.25 G, BID
     Route: 048
     Dates: start: 201603, end: 201603
  14. ESTRADIOL. [Concomitant]
     Active Substance: ESTRADIOL
  15. RIZATRIPTAN. [Concomitant]
     Active Substance: RIZATRIPTAN
  16. CEFALEXIN [Concomitant]
     Active Substance: CEPHALEXIN
  17. PROAIR HFA [Concomitant]
     Active Substance: ALBUTEROL SULFATE
  18. XYREM [Suspect]
     Active Substance: SODIUM OXYBATE
     Dosage: 4 G, BID
     Route: 048
     Dates: start: 2016
  19. ESOMEPRAZOLE MAGNESIUM. [Concomitant]
     Active Substance: ESOMEPRAZOLE MAGNESIUM
  20. LORATADINE. [Concomitant]
     Active Substance: LORATADINE
  21. PHENAZOPYRIDINE. [Concomitant]
     Active Substance: PHENAZOPYRIDINE
  22. BUPROPION HCL [Concomitant]
     Active Substance: BUPROPION HYDROCHLORIDE
  23. METHYLPHENIDATE. [Concomitant]
     Active Substance: METHYLPHENIDATE
  24. TIZANIDINE HCL [Concomitant]
     Active Substance: TIZANIDINE HYDROCHLORIDE

REACTIONS (2)
  - Astigmatism [Unknown]
  - Dizziness [Not Recovered/Not Resolved]
